FAERS Safety Report 25741055 (Version 1)
Quarter: 2025Q3

REPORT INFORMATION
  Report Type: Spontaneous
  Country: US (occurrence: US)
  Receive Date: 20250829
  Receipt Date: 20250829
  Transmission Date: 20251020
  Serious: No
  Sender: GALPHARM INTERNATIONAL
  Company Number: US-PERRIGO-25US004308

PATIENT
  Age: 34 Year
  Sex: Female
  Weight: 45.351 kg

DRUGS (2)
  1. ELLA [Suspect]
     Active Substance: ULIPRISTAL ACETATE
     Indication: Post coital contraception
     Route: 048
     Dates: start: 20250325, end: 20250325
  2. MINERALS\VITAMINS [Concomitant]
     Active Substance: MINERALS\VITAMINS
     Indication: Supplementation therapy
     Route: 065
     Dates: start: 202501

REACTIONS (10)
  - Pelvic pain [Recovered/Resolved]
  - Eyelid function disorder [Recovered/Resolved]
  - Hormone level abnormal [Not Recovered/Not Resolved]
  - Adjustment disorder with depressed mood [Not Recovered/Not Resolved]
  - Groin pain [Recovered/Resolved]
  - Affect lability [Not Recovered/Not Resolved]
  - Vision blurred [Recovered/Resolved]
  - Fear [Not Recovered/Not Resolved]
  - Dysmenorrhoea [Not Recovered/Not Resolved]
  - Acne [Not Recovered/Not Resolved]

NARRATIVE: CASE EVENT DATE: 20250325
